FAERS Safety Report 14490120 (Version 1)
Quarter: 2018Q1

REPORT INFORMATION
  Report Type: Spontaneous
  Country: CL (occurrence: CL)
  Receive Date: 20180206
  Receipt Date: 20180206
  Transmission Date: 20180509
  Serious: Yes (Other)
  Sender: FDA-Public Use
  Company Number: CL-ROCHE-1951326

PATIENT
  Sex: Male

DRUGS (1)
  1. VISCOZYME (DORNASE ALFA) [Suspect]
     Active Substance: DORNASE ALFA
     Indication: PRODUCT USED FOR UNKNOWN INDICATION
     Route: 065

REACTIONS (6)
  - Histiocytosis haematophagic [Unknown]
  - Pseudomonas infection [Unknown]
  - Haemoptysis [Unknown]
  - Prothrombin time shortened [Unknown]
  - Infection [Unknown]
  - Platelet count decreased [Unknown]
